FAERS Safety Report 24360447 (Version 1)
Quarter: 2024Q3

REPORT INFORMATION
  Report Type: Other
  Country: MY (occurrence: MY)
  Receive Date: 20240925
  Receipt Date: 20240925
  Transmission Date: 20241017
  Serious: Yes (Disabling)
  Sender: DEXCEL
  Company Number: MY-DEXPHARM-2024-3182

PATIENT
  Age: 68 Year
  Sex: Male

DRUGS (1)
  1. DICLOFENAC [Suspect]
     Active Substance: DICLOFENAC
     Indication: Renal colic
     Route: 030

REACTIONS (1)
  - Cutaneous vasculitis [Recovered/Resolved with Sequelae]
